FAERS Safety Report 9404410 (Version 1)
Quarter: 2013Q3

REPORT INFORMATION
  Report Type: Spontaneous
  Country: US (occurrence: None)
  Receive Date: 20130711
  Receipt Date: 20130711
  Transmission Date: 20140515
  Serious: Yes (Other)
  Sender: FDA-Public Use
  Company Number: US-012251

PATIENT
  Age: 73 Year
  Sex: Male
  Weight: 86.18 kg

DRUGS (19)
  1. DEGARELIX 80 MG [Suspect]
     Indication: PRODUCT USED FOR UNKNOWN INDICATION
     Dates: end: 201304
  2. GLIPIZIDE [Concomitant]
  3. CARVEDILOL [Concomitant]
  4. DOXAZOSIN [Concomitant]
  5. FUROSEMIDE [Concomitant]
  6. MAXIDEX / 00016001/ [Concomitant]
  7. TIMOLOL [Concomitant]
  8. MURO 128 [Concomitant]
  9. GENTEAL LUBRICANT [Concomitant]
  10. ECOTRIN [Concomitant]
  11. TAB A VITE + IRON [Concomitant]
  12. OMEGA 3 FISH OILS [Concomitant]
  13. CO ENZYME Q10 / 00517201/ [Concomitant]
  14. CALCIUM CITRATE/VITAMIN D [Concomitant]
  15. STOOL SOFTENER [Concomitant]
  16. CINNAMON /01647501/ [Concomitant]
  17. CHROMIUM [Concomitant]
  18. AMLODIPINE BESYLATE [Concomitant]
  19. OMEPRAZOLE [Concomitant]

REACTIONS (4)
  - Blood glucose increased [None]
  - Injection site swelling [None]
  - Injection site pain [None]
  - Injection site erythema [None]
